FAERS Safety Report 10254778 (Version 1)
Quarter: 2014Q2

REPORT INFORMATION
  Report Type: Spontaneous
  Country: US (occurrence: US)
  Receive Date: 20140624
  Receipt Date: 20140624
  Transmission Date: 20141212
  Serious: Yes (Other)
  Sender: FDA-Public Use
  Company Number: US-BAYER-2014-094404

PATIENT
  Age: 42 Year
  Sex: Female
  Weight: 86.17 kg

DRUGS (10)
  1. YAZ [Suspect]
     Dosage: UNK
  2. YASMIN [Suspect]
  3. OCELLA [Suspect]
  4. NABUMETONE [Concomitant]
     Dosage: 500 MG, UNK
  5. NASACORT [Concomitant]
     Dosage: 55MCG
  6. ASTEPRO [Concomitant]
     Dosage: 0.15 %, UNK
  7. METHYLPHENIDATE [Concomitant]
     Dosage: 5 MG, UNK
  8. APAP [Concomitant]
     Dosage: 300-30
  9. OMEPRAZOLE [Concomitant]
     Dosage: 20 MG, UNK
  10. RITALIN [Concomitant]

REACTIONS (1)
  - Deep vein thrombosis [None]
